FAERS Safety Report 4618408-8 (Version None)
Quarter: 2005Q1

REPORT INFORMATION
  Report Type: 
  Country: None (occurrence: None)
  Receive Date: 20050323
  Receipt Date: 20050309
  Transmission Date: 20050727
  Serious: Yes (Hospitalization)
  Sender: FDA-Public Use
  Company Number: EWC040137735

PATIENT
  Age: 3 Year
  Sex: Female
  Weight: 9 kg

DRUGS (1)
  1. HUMATROPE [Suspect]
     Indication: GROWTH RETARDATION
     Dosage: 0.3 MG/1 DAY
     Dates: start: 20031014

REACTIONS (5)
  - ADENOIDAL HYPERTROPHY [None]
  - CEREBRAL DISORDER [None]
  - DISEASE RECURRENCE [None]
  - LARYNGITIS [None]
  - TONSILLAR HYPERTROPHY [None]
